FAERS Safety Report 9450796 (Version 1)
Quarter: 2013Q3

REPORT INFORMATION
  Report Type: Spontaneous
  Country: US (occurrence: US)
  Receive Date: 20130809
  Receipt Date: 20130809
  Transmission Date: 20140515
  Serious: No
  Sender: FDA-Public Use
  Company Number: US-AMGEN-USASP2012067265

PATIENT
  Age: 57 Year
  Sex: Female

DRUGS (11)
  1. NEUPOGEN [Suspect]
     Indication: CHEMOTHERAPY
     Dosage: UNK
     Dates: start: 201210
  2. RITUXIMAB [Concomitant]
     Indication: CHRONIC LYMPHOCYTIC LEUKAEMIA
     Dosage: UNK
  3. RITUXIMAB [Concomitant]
     Indication: B-CELL SMALL LYMPHOCYTIC LYMPHOMA
  4. CYCLOPHOSPHAMIDE [Concomitant]
     Indication: CHRONIC LYMPHOCYTIC LEUKAEMIA
     Dosage: UNK
  5. CYCLOPHOSPHAMIDE [Concomitant]
     Indication: B-CELL SMALL LYMPHOCYTIC LYMPHOMA
  6. DOXORUBICIN [Concomitant]
     Indication: CHRONIC LYMPHOCYTIC LEUKAEMIA
     Dosage: UNK
  7. DOXORUBICIN [Concomitant]
     Indication: B-CELL SMALL LYMPHOCYTIC LYMPHOMA
  8. VINCRISTINE [Concomitant]
     Indication: CHRONIC LYMPHOCYTIC LEUKAEMIA
     Dosage: UNK
  9. VINCRISTINE [Concomitant]
     Indication: B-CELL SMALL LYMPHOCYTIC LYMPHOMA
  10. PREDNISOLONE [Concomitant]
     Indication: CHRONIC LYMPHOCYTIC LEUKAEMIA
     Dosage: UNK
  11. PREDNISOLONE [Concomitant]
     Indication: B-CELL SMALL LYMPHOCYTIC LYMPHOMA

REACTIONS (5)
  - Influenza like illness [Unknown]
  - Incorrect product storage [Unknown]
  - Headache [Unknown]
  - Myalgia [Unknown]
  - Bone pain [Unknown]
